FAERS Safety Report 9843529 (Version 1)
Quarter: 2013Q4

REPORT INFORMATION
  Report Type: Spontaneous
  Country: US (occurrence: None)
  Receive Date: 20131223
  Receipt Date: 20131223
  Transmission Date: 20140711
  Serious: No
  Sender: FDA-Public Use
  Company Number: 218329LEO

PATIENT
  Sex: Male

DRUGS (2)
  1. PICATO (0.015, GEL) [Suspect]
     Indication: ACTINIC KERATOSIS
     Dosage: TOPICAL
     Route: 061
     Dates: start: 20120709
  2. SYNTHROID (LEVOTHYROXINE SODIUM) (0.15 MCG) [Concomitant]

REACTIONS (2)
  - Application site vesicles [None]
  - Application site swelling [None]
